FAERS Safety Report 9266321 (Version 3)
Quarter: 2014Q2

REPORT INFORMATION
  Report Type: Spontaneous
  Country: JP (occurrence: JP)
  Receive Date: 20130502
  Receipt Date: 20140619
  Transmission Date: 20141212
  Serious: Yes (Hospitalization)
  Sender: FDA-Public Use
  Company Number: JP-JNJFOC-20130413583

PATIENT
  Age: 64 Year
  Sex: Female

DRUGS (7)
  1. GOLIMUMAB [Suspect]
     Indication: RHEUMATOID ARTHRITIS
     Dosage: FOR 24 WEEKS
     Route: 058
     Dates: start: 20110929, end: 20120524
  2. MEDROL [Suspect]
     Indication: MIXED CONNECTIVE TISSUE DISEASE
     Route: 048
     Dates: start: 20110524, end: 20130920
  3. MEDROL [Suspect]
     Indication: RHEUMATOID ARTHRITIS
     Route: 048
     Dates: start: 20110524, end: 20130920
  4. ROXATIDINE ACETATE HYDROCHLORIDE [Concomitant]
     Indication: GASTROINTESTINAL DISORDER
     Route: 048
     Dates: start: 20110524, end: 20120109
  5. MAGMITT [Concomitant]
     Indication: CONSTIPATION
     Route: 048
     Dates: start: 20101102, end: 20111124
  6. MEVALOTIN [Concomitant]
     Indication: HYPERCHOLESTEROLAEMIA
     Route: 048
     Dates: start: 20111027, end: 20120621
  7. ISCOTIN [Concomitant]
     Indication: PROPHYLAXIS
     Route: 048
     Dates: start: 20110915, end: 20120524

REACTIONS (2)
  - Embolism venous [Recovering/Resolving]
  - Pulmonary artery thrombosis [Recovering/Resolving]
